FAERS Safety Report 8140989-0 (Version None)
Quarter: 2012Q1

REPORT INFORMATION
  Report Type: 
  Country: None (occurrence: None)
  Receive Date: 20120216
  Receipt Date: 20120203
  Transmission Date: 20120608
  Serious: Yes (Hospitalization, Other)
  Sender: FDA-Public Use
  Company Number: DE-BAYER-2012-006725

PATIENT
  Age: 72 Year
  Sex: Female
  Weight: 76 kg

DRUGS (4)
  1. PREDNISOLONE [Concomitant]
     Dosage: 100 MG, 1-3 TIMES A ADAY
  2. SORAFENIB (RAF KINASE INHIBITOR) [Suspect]
     Dosage: 400 MG, BID
     Dates: start: 20120126
  3. BLINDED SORAFENIB (RAF KINASE INHIBITOR) [Suspect]
     Indication: INTRAOCULAR MELANOMA
     Dosage: UNK
  4. SORAFENIB (RAF KINASE INHIBITOR) [Suspect]
     Indication: INTRAOCULAR MELANOMA
     Dosage: 800 MG, QD
     Route: 048
     Dates: start: 20120107, end: 20120118

REACTIONS (7)
  - HYPERTENSIVE CRISIS [None]
  - CHILLS [None]
  - RASH [None]
  - RASH ERYTHEMATOUS [None]
  - HYPERTONIA [None]
  - CONVULSION [None]
  - DRUG HYPERSENSITIVITY [None]
